FAERS Safety Report 7898346 (Version 4)
Quarter: 2013Q1

REPORT INFORMATION
  Report Type: Report from Study
  Country: US (occurrence: US)
  Receive Date: 20110413
  Receipt Date: 20130131
  Transmission Date: 20140127
  Serious: Yes (Hospitalization)
  Sender: FDA-Public Use
  Company Number: US-BRISTOL-MYERS SQUIBB COMPANY-15667520

PATIENT
  Age: 70 Year
  Sex: Male
  Weight: 69.84 kg

DRUGS (23)
  1. CETUXIMAB [Suspect]
     Indication: HEAD AND NECK CANCER
     Dosage: DURATION:64 DAYS.?MOST RECENT INFU:30MAR11?NO OF INFU:9
     Route: 042
     Dates: start: 20110124, end: 20110330
  2. CISPLATIN [Suspect]
     Indication: HEAD AND NECK CANCER
     Dosage: DURATION:57 DAYS?MOST RECENT INFU:23MAR11?NO OF INFU:3
     Route: 042
     Dates: start: 20110124, end: 20110323
  3. 5-FLUOROURACIL [Suspect]
     Indication: HEAD AND NECK CANCER
     Dosage: DURATION:57 DAYS.?MOST RECENT INFU:23MAR11?NO OF INFU:3
     Route: 042
     Dates: start: 20110124, end: 20110323
  4. PREVACID [Concomitant]
     Route: 065
  5. PHENERGAN [Concomitant]
     Indication: NAUSEA
     Route: 048
     Dates: start: 20110124
  6. ANZEMET [Concomitant]
     Indication: NAUSEA
     Route: 048
     Dates: start: 20110124
  7. CLINDAMYCIN [Concomitant]
     Indication: DERMATITIS ACNEIFORM
     Route: 061
     Dates: start: 20110207
  8. MINOCYCLINE [Concomitant]
     Indication: DERMATITIS ACNEIFORM
     Route: 048
     Dates: start: 20110214
  9. MIRALAX [Concomitant]
     Indication: CONSTIPATION
     Route: 048
     Dates: start: 20110221
  10. POTASSIUM CHLORIDE [Concomitant]
     Indication: HYPOKALAEMIA
     Route: 048
     Dates: start: 20110131
  11. MAGNESIUM OXIDE [Concomitant]
     Indication: HYPOMAGNESAEMIA
     Route: 048
     Dates: start: 20110302
  12. DEXTROSE [Concomitant]
     Indication: FATIGUE
     Dosage: 1DF=20.UNIT NOT SPECIFIED
     Route: 042
     Dates: start: 20110302
  13. DEXTROSE [Concomitant]
     Indication: NAUSEA
     Dosage: 1DF=20.UNIT NOT SPECIFIED
     Route: 042
     Dates: start: 20110302
  14. KYTRIL [Concomitant]
     Indication: FATIGUE
     Route: 042
     Dates: start: 20110302
  15. KYTRIL [Concomitant]
     Indication: NAUSEA
     Route: 042
     Dates: start: 20110302
  16. SODIUM CHLORIDE [Concomitant]
     Indication: FATIGUE
     Route: 042
     Dates: start: 20110302
  17. SODIUM CHLORIDE [Concomitant]
     Indication: ASTHENIA
     Route: 042
     Dates: start: 20110302
  18. MINOCYCLINE [Concomitant]
     Indication: RASH
     Route: 048
     Dates: start: 20110311
  19. PREDNISONE [Concomitant]
     Indication: FATIGUE
     Route: 048
     Dates: start: 20110330
  20. PRILOSEC [Concomitant]
     Route: 065
  21. K-DUR [Concomitant]
     Route: 065
  22. GLYCOLAX [Concomitant]
     Route: 065
  23. RESTORIL [Concomitant]
     Route: 065

REACTIONS (3)
  - Upper gastrointestinal haemorrhage [Recovered/Resolved]
  - Hypotension [Recovered/Resolved]
  - Anaemia [Recovered/Resolved]
